FAERS Safety Report 19270057 (Version 1)
Quarter: 2021Q2

REPORT INFORMATION
  Report Type: Spontaneous
  Country: US (occurrence: US)
  Receive Date: 20210518
  Receipt Date: 20210518
  Transmission Date: 20210717
  Serious: Yes (Other)
  Sender: FDA-Public Use
  Company Number: US-ACCORD-225415

PATIENT
  Sex: Female

DRUGS (3)
  1. ALLOPURINOL. [Concomitant]
     Active Substance: ALLOPURINOL
  2. OLMESARTAN?MEDOXOMIL ACCORD [Suspect]
     Active Substance: OLMESARTAN MEDOXOMIL
     Indication: BLOOD PRESSURE MEASUREMENT
     Dosage: DAILY
     Route: 048
     Dates: start: 20201029, end: 20210427
  3. HYDROCHLOROTHIAZIDE/TRIAMTERENE [Concomitant]
     Active Substance: HYDROCHLOROTHIAZIDE\TRIAMTERENE

REACTIONS (8)
  - Acute kidney injury [Unknown]
  - Asthenia [Unknown]
  - Cardiac flutter [Unknown]
  - Chills [Unknown]
  - Palpitations [Unknown]
  - Dizziness [Unknown]
  - Back pain [Unknown]
  - Fatigue [Unknown]
